FAERS Safety Report 7148508-2 (Version None)
Quarter: 2010Q4

REPORT INFORMATION
  Report Type: 
  Country: None (occurrence: None)
  Receive Date: 20101209
  Receipt Date: 20101130
  Transmission Date: 20110411
  Serious: Yes (Hospitalization)
  Sender: FDA-Public Use
  Company Number: CZ-AMGEN-CZESP2010004179

PATIENT

DRUGS (1)
  1. NPLATE [Suspect]
     Indication: PRODUCT USED FOR UNKNOWN INDICATION
     Dosage: 4 A?G, UNK
     Dates: start: 20100831, end: 20101007

REACTIONS (2)
  - ARTERIAL HAEMORRHAGE [None]
  - EMBOLISM ARTERIAL [None]
